FAERS Safety Report 7000401-1 (Version None)
Quarter: 2010Q3

REPORT INFORMATION
  Report Type: 
  Country: None (occurrence: None)
  Receive Date: 20100920
  Receipt Date: 20090901
  Transmission Date: 20110219
  Serious: No
  Sender: FDA-Public Use
  Company Number: US-ASTRAZENECA-2009SE10870

PATIENT
  Sex: Female

DRUGS (7)
  1. SEROQUEL [Suspect]
     Indication: BIPOLAR DISORDER
     Route: 048
     Dates: start: 20090601, end: 20090701
  2. SEROQUEL [Suspect]
     Route: 048
     Dates: start: 20090701
  3. AMBIEN [Concomitant]
  4. LUNESTA [Concomitant]
  5. WELLBUTRIN [Concomitant]
  6. ARACEPT [Concomitant]
  7. NAMENDA [Concomitant]

REACTIONS (3)
  - ABNORMAL BEHAVIOUR [None]
  - AMNESIA [None]
  - INSOMNIA [None]
